FAERS Safety Report 24235767 (Version 2)
Quarter: 2024Q3

REPORT INFORMATION
  Report Type: Spontaneous
  Country: BR (occurrence: BR)
  Receive Date: 20240822
  Receipt Date: 20240828
  Transmission Date: 20241017
  Serious: Yes (Other)
  Sender: CELLTRION
  Company Number: BR-CELLTRION INC.-2022BR012865

PATIENT

DRUGS (8)
  1. INFLIXIMAB [Suspect]
     Active Substance: INFLIXIMAB
     Indication: Ankylosing spondylitis
     Dosage: 6 AMPOULES EVERY 2 MONTHS
     Route: 042
  2. INFLIXIMAB [Suspect]
     Active Substance: INFLIXIMAB
     Dosage: 6 VIALS EVERY 8 WEEKS - HAS BEEN REDUCED TO 6 WEEKS (DAILY DOSE: 6 AMPOULES EVERY 6 WEEKS)
     Route: 042
     Dates: start: 20220822
  3. INFLIXIMAB [Suspect]
     Active Substance: INFLIXIMAB
     Dosage: 6 AMPOULES EVERY 6 WEEKS
     Route: 042
     Dates: start: 20240710
  4. INFLIXIMAB [Suspect]
     Active Substance: INFLIXIMAB
     Dosage: 6 AMPOULES OF 100 MG EACH (600MG IN TOTAL) EVERY 6 WEEKS
     Route: 042
  5. LOSARTAN [Concomitant]
     Active Substance: LOSARTAN\LOSARTAN POTASSIUM
     Indication: Hypertension
     Dosage: 2X A DAY (START: 6 YEARS AGO)
     Route: 048
  6. AMITRIPTYLINE HYDROCHLORIDE [Concomitant]
     Active Substance: AMITRIPTYLINE HYDROCHLORIDE
     Indication: Ankylosing spondylitis
     Dosage: (START: 8 YEARS AGO)
     Route: 048
  7. CARBAMAZEPINE [Concomitant]
     Active Substance: CARBAMAZEPINE
     Indication: Ankylosing spondylitis
     Dosage: (START: 8 YEARS AGO)
     Route: 048
  8. ISONIAZID [Concomitant]
     Active Substance: ISONIAZID
     Dosage: 3X A DAY (START: 5 YEARS AGO)
     Route: 048

REACTIONS (3)
  - Nodule [Recovering/Resolving]
  - Abdominal pain upper [Not Recovered/Not Resolved]
  - Overdose [Unknown]

NARRATIVE: CASE EVENT DATE: 20220822
